FAERS Safety Report 16192418 (Version 2)
Quarter: 2019Q2

REPORT INFORMATION
  Report Type: Spontaneous
  Country: US (occurrence: US)
  Receive Date: 20190412
  Receipt Date: 20190619
  Transmission Date: 20190711
  Serious: Yes (Other)
  Sender: FDA-Public Use
  Company Number: US-SA-2019SA099781

PATIENT
  Age: 42 Year
  Sex: Female

DRUGS (1)
  1. AUBAGIO [Suspect]
     Active Substance: TERIFLUNOMIDE
     Indication: MULTIPLE SCLEROSIS
     Dosage: 14 MG, QD
     Route: 048
     Dates: start: 20181009

REACTIONS (7)
  - Multiple sclerosis relapse [Unknown]
  - Migraine [Unknown]
  - Dizziness [Unknown]
  - Visual impairment [Unknown]
  - Paraesthesia [Unknown]
  - Alopecia [Unknown]
  - Product dose omission [Unknown]
